FAERS Safety Report 6627951-1 (Version None)
Quarter: 2010Q1

REPORT INFORMATION
  Report Type: 
  Country: None (occurrence: None)
  Receive Date: 20100311
  Receipt Date: 20090413
  Transmission Date: 20100710
  Serious: No
  Sender: FDA-Public Use
  Company Number: A0778834A

PATIENT
  Sex: Male

DRUGS (2)
  1. NICORETTE [Suspect]
     Indication: ILL-DEFINED DISORDER
  2. NICODERM CQ [Suspect]

REACTIONS (4)
  - BREATH ODOUR [None]
  - ILL-DEFINED DISORDER [None]
  - PALLOR [None]
  - SKIN ODOUR ABNORMAL [None]
